FAERS Safety Report 6486490-1 (Version None)
Quarter: 2009Q4

REPORT INFORMATION
  Report Type: 
  Country: None (occurrence: None)
  Receive Date: 20091210
  Receipt Date: 20091201
  Transmission Date: 20100525
  Serious: Yes (Hospitalization, Other)
  Sender: FDA-Public Use
  Company Number: KR-JNJFOC-20091202514

PATIENT
  Sex: Female

DRUGS (3)
  1. HALOPERIDOL [Suspect]
     Indication: SCHIZOPHRENIA, PARANOID TYPE
     Route: 065
  2. RISPERIDONE [Suspect]
     Indication: SCHIZOPHRENIA, PARANOID TYPE
     Route: 065
  3. THIORIDAZINE HCL [Suspect]
     Indication: SCHIZOPHRENIA, PARANOID TYPE
     Route: 065

REACTIONS (2)
  - PSYCHOTIC DISORDER [None]
  - TREATMENT NONCOMPLIANCE [None]
